FAERS Safety Report 4632955-4 (Version None)
Quarter: 2005Q2

REPORT INFORMATION
  Report Type: 
  Country: None (occurrence: None)
  Receive Date: 20050412
  Receipt Date: 20050404
  Transmission Date: 20051028
  Serious: Yes (Other)
  Sender: FDA-Public Use
  Company Number: US-ROCHE-400913

PATIENT
  Sex: Male
  Weight: 122.9 kg

DRUGS (6)
  1. XENICAL [Suspect]
     Indication: OBESITY
     Route: 048
     Dates: start: 20020615, end: 20040615
  2. TRICOR [Concomitant]
     Route: 048
  3. LISINOPRIL [Concomitant]
     Indication: BLOOD PRESSURE INCREASED
     Route: 048
  4. NORVASC [Concomitant]
     Indication: BLOOD PRESSURE INCREASED
     Route: 048
  5. MEVACOR [Concomitant]
     Route: 048
  6. LODINE [Concomitant]
     Indication: ARTHRITIS

REACTIONS (4)
  - APPENDICITIS [None]
  - CARCINOID TUMOUR OF THE GASTROINTESTINAL TRACT [None]
  - INCISIONAL HERNIA [None]
  - WEIGHT INCREASED [None]
